FAERS Safety Report 18108237 (Version 4)
Quarter: 2020Q3

REPORT INFORMATION
  Report Type: Spontaneous
  Country: US (occurrence: US)
  Receive Date: 20200803
  Receipt Date: 20200908
  Transmission Date: 20201103
  Serious: Yes (Other)
  Sender: FDA-Public Use
  Company Number: US-009507513-2007USA011058

PATIENT
  Age: 78 Year
  Sex: Female
  Weight: 67.21 kg

DRUGS (4)
  1. INLYTA [Concomitant]
     Active Substance: AXITINIB
     Dosage: 5 MILLIGRAM, BID
     Dates: start: 2020
  2. KEYTRUDA [Suspect]
     Active Substance: PEMBROLIZUMAB
     Dosage: 200 MILLIGRAM EVERY 21 DAYS
     Dates: start: 20200717
  3. INLYTA [Concomitant]
     Active Substance: AXITINIB
     Indication: METASTATIC RENAL CELL CARCINOMA
     Dosage: 5 MILLIGRAM, BID
     Route: 048
     Dates: start: 202002, end: 20200622
  4. KEYTRUDA [Suspect]
     Active Substance: PEMBROLIZUMAB
     Indication: RENAL CELL CARCINOMA
     Dosage: 200 MILLIGRAM EVERY 21 DAYS
     Dates: start: 20200217, end: 20200622

REACTIONS (2)
  - Immune-mediated hyperthyroidism [Recovered/Resolved]
  - Inappropriate schedule of product administration [Unknown]

NARRATIVE: CASE EVENT DATE: 20200618
